FAERS Safety Report 23624507 (Version 1)
Quarter: 2024Q1

REPORT INFORMATION
  Report Type: Spontaneous
  Country: FR (occurrence: FR)
  Receive Date: 20240313
  Receipt Date: 20240313
  Transmission Date: 20240410
  Serious: Yes (Death, Other)
  Sender: FDA-Public Use
  Company Number: FR-AFSSAPS-RN2024000215

PATIENT
  Age: 44 Year
  Sex: Male

DRUGS (6)
  1. CLOZAPINE [Suspect]
     Active Substance: CLOZAPINE
     Indication: Behaviour disorder
     Dosage: UNK
     Route: 048
  2. TOPIRAMATE [Suspect]
     Active Substance: TOPIRAMATE
     Indication: Epilepsy
     Dosage: UNK
     Route: 048
  3. CARBAMAZEPINE [Suspect]
     Active Substance: CARBAMAZEPINE
     Indication: Behaviour disorder
     Dosage: UNK
     Route: 048
  4. CLOBAZAM [Suspect]
     Active Substance: CLOBAZAM
     Indication: Epilepsy
     Dosage: UNK
     Route: 048
  5. LOXAPINE [Suspect]
     Active Substance: LOXAPINE
     Indication: Behaviour disorder
     Dosage: UNK
     Route: 048
  6. NICOTINE [Suspect]
     Active Substance: NICOTINE
     Indication: Ex-tobacco user
     Dosage: UNK
     Route: 062

REACTIONS (2)
  - Choking [Fatal]
  - Dry mouth [Fatal]

NARRATIVE: CASE EVENT DATE: 20231202
